FAERS Safety Report 6107770-5 (Version None)
Quarter: 2009Q1

REPORT INFORMATION
  Report Type: 
  Country: None (occurrence: None)
  Receive Date: 20090309
  Receipt Date: 20090303
  Transmission Date: 20090719
  Serious: Yes (Other)
  Sender: FDA-Public Use
  Company Number: B0556749A

PATIENT
  Age: 7 Year
  Sex: Male
  Weight: 21 kg

DRUGS (4)
  1. RELENZA [Suspect]
     Indication: INFLUENZA
     Dosage: 10MG TWICE PER DAY
     Route: 055
     Dates: start: 20090127
  2. MEDICON [Concomitant]
     Dosage: .2G PER DAY
     Route: 048
     Dates: start: 20090127, end: 20090202
  3. MUCOSOLVON [Concomitant]
     Dosage: .85G PER DAY
     Route: 048
     Dates: start: 20090127, end: 20090202
  4. NIPOLAZIN [Concomitant]
     Dosage: .6G PER DAY
     Route: 048
     Dates: start: 20090127, end: 20090202

REACTIONS (2)
  - DIZZINESS [None]
  - HALLUCINATION [None]
